FAERS Safety Report 15233086 (Version 1)
Quarter: 2018Q3

REPORT INFORMATION
  Report Type: Spontaneous
  Country: US (occurrence: US)
  Receive Date: 20180709
  Receipt Date: 20180709
  Transmission Date: 20181010
  Serious: No
  Sender: FDA-Public Use
  Company Number: None

PATIENT
  Age: 65 Year
  Sex: Male

DRUGS (1)
  1. TEMODAR [Suspect]
     Active Substance: TEMOZOLOMIDE
     Route: 048

REACTIONS (5)
  - Tinnitus [None]
  - Product use complaint [None]
  - Vomiting [None]
  - Nausea [None]
  - Product taste abnormal [None]

NARRATIVE: CASE EVENT DATE: 20180709
